FAERS Safety Report 7234172-0 (Version None)
Quarter: 2011Q1

REPORT INFORMATION
  Report Type: 
  Country: None (occurrence: None)
  Receive Date: 20110119
  Receipt Date: 20110117
  Transmission Date: 20110831
  Serious: No
  Sender: FDA-Public Use
  Company Number: US-PFIZER INC-2011011230

PATIENT
  Sex: Female
  Weight: 63.492 kg

DRUGS (11)
  1. ZOLOFT [Suspect]
     Indication: DEPRESSION
     Dosage: 75 MG, DAILY
     Route: 048
     Dates: start: 20101210
  2. GLUCOTROL XL [Concomitant]
     Dosage: 5 MG, 1X/DAY
  3. VITAMIN D [Concomitant]
     Dosage: 50000 IU, ONCE EVERY TWO WEEKS
     Route: 048
  4. LIPITOR [Concomitant]
     Dosage: UNK
  5. ISOSORBIDE [Concomitant]
     Dosage: 60 MG, 1X/DAY
     Route: 048
  6. CARVEDILOL [Concomitant]
     Dosage: 6.25 MG, 1X/DAY
  7. PLAVIX [Concomitant]
     Dosage: 75 MG, 1X/DAY
  8. AMBIEN [Concomitant]
     Indication: INSOMNIA
     Dosage: 10 MG, 1X/DAY
  9. NORVASC [Concomitant]
     Dosage: 5 MG, 1X/DAY
     Route: 048
  10. GLUCOPHAGE [Concomitant]
     Dosage: 1000 MG, 1X/DAY
  11. LORAZEPAM [Concomitant]
     Indication: INSOMNIA
     Dosage: 1 MG, 2X/DAY
     Route: 048

REACTIONS (2)
  - DRUG INEFFECTIVE [None]
  - ASTHENIA [None]
